FAERS Safety Report 9896294 (Version 2)
Quarter: 2014Q1

REPORT INFORMATION
  Report Type: Spontaneous
  Country: US (occurrence: US)
  Receive Date: 20140213
  Receipt Date: 20140213
  Transmission Date: 20141002
  Serious: No
  Sender: FDA-Public Use
  Company Number: US-BRISTOL-MYERS SQUIBB COMPANY-18821900

PATIENT
  Age: 64 Year
  Sex: Male
  Weight: 87.07 kg

DRUGS (9)
  1. ABATACEPT SUBQ INJECTION 125MG/ML [Suspect]
     Indication: RHEUMATOID ARTHRITIS
     Dosage: FORMULATION: PFS (4 PACK)
     Route: 058
     Dates: start: 2010, end: 201212
  2. PLAQUENIL [Concomitant]
  3. METFORMIN [Concomitant]
     Dosage: TABS
  4. SIMVASTATIN [Concomitant]
     Dosage: TABS
  5. LOSARTAN POTASSIUM + HCTZ [Concomitant]
     Dosage: 100/12.5 TAB
  6. HYDROXYCHLOROQUINE [Concomitant]
     Dosage: TABS
  7. METHOTREXATE [Concomitant]
     Dosage: INJECTION 250/10 ML
  8. FOLIC ACID [Concomitant]
     Dosage: TABS
  9. OMEGA 3 FATTY ACID [Concomitant]
     Dosage: CAPS

REACTIONS (1)
  - Pruritus [Recovered/Resolved]
